FAERS Safety Report 7208360-3 (Version None)
Quarter: 2011Q1

REPORT INFORMATION
  Report Type: 
  Country: None (occurrence: None)
  Receive Date: 20110104
  Receipt Date: 20101221
  Transmission Date: 20110831
  Serious: Yes (Hospitalization, Other)
  Sender: FDA-Public Use
  Company Number: PHHY2010AU80251

PATIENT
  Sex: Female

DRUGS (11)
  1. CLOZARIL [Suspect]
     Dosage: 25 MG DAILY
     Route: 048
     Dates: start: 20101116
  2. ATORVASTATIN [Concomitant]
     Dosage: 20 MG NOCTE
  3. EFFEXOR XR [Concomitant]
     Dosage: 225 MG MANE
     Route: 048
  4. ASPIRIN [Concomitant]
  5. GLICLAZIDE [Concomitant]
     Dosage: 30 MG MANE
  6. CLOZARIL [Suspect]
     Dosage: 150 MG DAILY
     Route: 048
     Dates: start: 20101121, end: 20101123
  7. FISH OIL [Concomitant]
     Dosage: UNK
  8. LITHIUM [Concomitant]
     Dosage: 250 MG MANE, 500 MG NOCTE
     Route: 048
  9. SEARCH E [Concomitant]
     Dosage: UNK
  10. OXYBUTYNIN [Concomitant]
     Dosage: 05 MG, BID
  11. DIAFORMIN [Concomitant]
     Dosage: 500 MG, BID

REACTIONS (4)
  - RENAL IMPAIRMENT [None]
  - PYREXIA [None]
  - ATELECTASIS [None]
  - SOMNOLENCE [None]
